FAERS Safety Report 5494414-9 (Version None)
Quarter: 2007Q4

REPORT INFORMATION
  Report Type: 
  Country: None (occurrence: None)
  Receive Date: 20071022
  Receipt Date: 20071022
  Transmission Date: 20080405
  Serious: No
  Sender: FDA-Public Use
  Company Number: None

PATIENT
  Age: 24 Year
  Sex: Female
  Weight: 47.1741 kg

DRUGS (3)
  1. PAROXETINE HCL [Suspect]
     Indication: DEPRESSION
     Dosage: 10-20 MG ONCE/TWICE A DAY PO
     Route: 048
     Dates: start: 19930701, end: 20030101
  2. PAROXETINE HCL [Suspect]
     Indication: SOCIAL PHOBIA
     Dosage: 10-20 MG ONCE/TWICE A DAY PO
     Route: 048
     Dates: start: 19930701, end: 20030101
  3. PAROXETINE HCL [Suspect]

REACTIONS (4)
  - ANGER [None]
  - ANORGASMIA [None]
  - LIBIDO DECREASED [None]
  - MARITAL PROBLEM [None]
